FAERS Safety Report 9774617 (Version 2)
Quarter: 2014Q1

REPORT INFORMATION
  Report Type: Spontaneous
  Country: BR (occurrence: BR)
  Receive Date: 20131220
  Receipt Date: 20140129
  Transmission Date: 20141002
  Serious: Yes (Hospitalization)
  Sender: FDA-Public Use
  Company Number: BR-ASTRAZENECA-2013SE91746

PATIENT
  Sex: Male
  Weight: 80 kg

DRUGS (13)
  1. BRILINTA [Suspect]
     Indication: CORONARY ARTERY OCCLUSION
     Route: 048
     Dates: start: 201306
  2. OMEPRAZOLE (UNSPECIFIED MANUFACTURER) [Suspect]
     Indication: GASTRIC DISORDER
     Route: 065
  3. CARVEDILOL [Concomitant]
     Indication: CARDIAC DISORDER
  4. DIAMICRON [Concomitant]
     Indication: DIABETES MELLITUS
  5. GLIFAGE [Concomitant]
     Indication: DIABETES MELLITUS
  6. ASA [Concomitant]
     Indication: CARDIAC DISORDER
  7. PROLOPA [Concomitant]
     Indication: PARKINSON^S DISEASE
  8. LOSARTAN POTASSIUM [Concomitant]
  9. FUROSEMIDE [Concomitant]
  10. FERROUS SULPHATE [Concomitant]
  11. ENDOFOLIN [Concomitant]
  12. LACTULONA [Concomitant]
  13. HIDANTAL [Concomitant]

REACTIONS (4)
  - Local swelling [Recovered/Resolved]
  - Cardiac failure [Recovered/Resolved]
  - Encephalopathy [Recovered/Resolved]
  - Coronary artery occlusion [Recovered/Resolved]
